FAERS Safety Report 7115021-8 (Version None)
Quarter: 2010Q4

REPORT INFORMATION
  Report Type: 
  Country: None (occurrence: None)
  Receive Date: 20101122
  Receipt Date: 20090305
  Transmission Date: 20110411
  Serious: No
  Sender: FDA-Public Use
  Company Number: 2009BI007076

PATIENT
  Age: 68 Year
  Sex: Male

DRUGS (2)
  1. TYSABRI [Suspect]
     Indication: MULTIPLE SCLEROSIS
     Route: 042
     Dates: start: 20080717, end: 20090227
  2. TYSABRI [Suspect]
     Route: 042
     Dates: start: 20090413

REACTIONS (2)
  - PARANASAL SINUS HYPERSECRETION [None]
  - SINUS OPERATION [None]
